FAERS Safety Report 6058875-9 (Version None)
Quarter: 2009Q1

REPORT INFORMATION
  Report Type: 
  Country: None (occurrence: None)
  Receive Date: 20090128
  Receipt Date: 20090112
  Transmission Date: 20090719
  Serious: Yes (Life-Threatening)
  Sender: FDA-Public Use
  Company Number: 2009S1000666

PATIENT
  Age: 66 Year
  Sex: Female

DRUGS (7)
  1. AMOXICILLIN [Suspect]
     Indication: GASTRITIS BACTERIAL
     Dosage: 1 G; TWICE A DAY; ORAL
     Route: 048
     Dates: start: 20080731, end: 20080806
  2. CLARITHROMYCIN [Suspect]
     Indication: GASTRITIS BACTERIAL
     Dosage: 500 MG; TWICE A DAY; ORAL
     Route: 048
     Dates: start: 20080731, end: 20080806
  3. SPIRONOLACTONE [Suspect]
     Indication: ASCITES
     Dosage: 100 MG; TWICE A DAY; ORAL
     Route: 048
     Dates: start: 20080101, end: 20080829
  4. LISINOPRIL [Suspect]
     Indication: HYPERTENSION
     Dosage: 10 MG; DAILY; ORAL
     Route: 048
     Dates: start: 20050101, end: 20080829
  5. TORSEMIDE [Suspect]
     Indication: ASCITES
     Dosage: 10 MG; TWICE A DAY; ORAL
     Route: 048
     Dates: start: 20080802, end: 20080829
  6. ALLOPURINOL [Concomitant]
  7. PROPRANOLOL [Concomitant]

REACTIONS (2)
  - DIARRHOEA [None]
  - SINOATRIAL BLOCK [None]
